FAERS Safety Report 22249893 (Version 1)
Quarter: 2023Q2

REPORT INFORMATION
  Report Type: Spontaneous
  Country: US (occurrence: None)
  Receive Date: 20230424
  Receipt Date: 20230424
  Transmission Date: 20230722
  Serious: Yes (Other)
  Sender: FDA-Public Use
  Company Number: None

PATIENT
  Age: 65 Year
  Sex: Female

DRUGS (21)
  1. EVENITY [Suspect]
     Active Substance: ROMOSOZUMAB-AQQG
     Indication: Osteoporosis
     Dosage: OTHER FREQUENCY : ONCE MONTHLY;?
     Route: 058
     Dates: start: 20230310
  2. OXYBUTYNIN [Concomitant]
     Active Substance: OXYBUTYNIN
  3. SERTRALINE [Concomitant]
     Active Substance: SERTRALINE HYDROCHLORIDE
  4. Calcium / Magnesium / Zinc [Concomitant]
  5. ANASTROZOLE [Concomitant]
     Active Substance: ANASTROZOLE
  6. BIOTIN [Concomitant]
     Active Substance: BIOTIN
  7. VITAMIN C [Concomitant]
     Active Substance: ASCORBIC ACID
  8. VITAMIN D [Concomitant]
     Active Substance: VITAMIN D NOS
  9. ASPIRIN [Concomitant]
     Active Substance: ASPIRIN
  10. HUMALOG [Concomitant]
     Active Substance: INSULIN LISPRO
  11. LANTUS [Concomitant]
     Active Substance: INSULIN GLARGINE
  12. METFORMIN [Concomitant]
     Active Substance: METFORMIN HYDROCHLORIDE
  13. MIRTAZAPINE [Concomitant]
     Active Substance: MIRTAZAPINE
  14. OZEMPIC [Concomitant]
     Active Substance: SEMAGLUTIDE
  15. PANTOPRAZOLE [Concomitant]
     Active Substance: PANTOPRAZOLE
  16. ZYRTEC [Concomitant]
     Active Substance: CETIRIZINE HYDROCHLORIDE
  17. CELLCEPT [Concomitant]
     Active Substance: MYCOPHENOLATE MOFETIL
  18. METOPROLOL SUCCINATE [Concomitant]
     Active Substance: METOPROLOL SUCCINATE
  19. SIMVASTATIN [Concomitant]
     Active Substance: SIMVASTATIN
  20. TACROLIMUS [Concomitant]
     Active Substance: TACROLIMUS
  21. IRON\VITAMINS [Concomitant]
     Active Substance: IRON\VITAMINS

REACTIONS (2)
  - Erythema [None]
  - Injection site induration [None]

NARRATIVE: CASE EVENT DATE: 20230410
